FAERS Safety Report 13182750 (Version 1)
Quarter: 2017Q1

REPORT INFORMATION
  Report Type: Spontaneous
  Country: US (occurrence: US)
  Receive Date: 20170203
  Receipt Date: 20170203
  Transmission Date: 20170428
  Serious: Yes (Hospitalization)
  Sender: FDA-Public Use
  Company Number: GXBR2017US000693

PATIENT
  Age: 54 Year
  Sex: Female
  Weight: 66.21 kg

DRUGS (2)
  1. GLATOPA [Suspect]
     Active Substance: GLATIRAMER ACETATE
     Indication: MULTIPLE SCLEROSIS
     Dosage: 10 MG, QD
     Route: 058
     Dates: start: 201701
  2. GLATOPA [Suspect]
     Active Substance: GLATIRAMER ACETATE
     Dosage: 20 MG, QD
     Route: 058

REACTIONS (10)
  - Chest discomfort [Recovered/Resolved]
  - Pyrexia [Recovering/Resolving]
  - Upper respiratory tract infection [Recovering/Resolving]
  - Malaise [Recovering/Resolving]
  - Feeling cold [Recovering/Resolving]
  - Tremor [Recovered/Resolved]
  - Hyperventilation [Recovered/Resolved]
  - Cough [Recovering/Resolving]
  - Dyspnoea [Recovered/Resolved]
  - Urinary tract infection [Recovering/Resolving]

NARRATIVE: CASE EVENT DATE: 20170120
